FAERS Safety Report 6260990 (Version 2)
Quarter: 2013Q3

REPORT INFORMATION
  Report Type: Other
  Country: US (occurrence: US)
  Receive Date: 20070314
  Receipt Date: 20130813
  Transmission Date: 20140515
  Serious: Yes (Other)
  Sender: FDA-Public Use
  Company Number: US-BRISTOL-MYERS SQUIBB COMPANY-13709779

PATIENT
  Sex: 0

DRUGS (1)
  1. ATAZANAVIR [Suspect]
     Indication: HIV INFECTION

REACTIONS (1)
  - Nephrolithiasis [None]
